FAERS Safety Report 7583577-7 (Version None)
Quarter: 2011Q2

REPORT INFORMATION
  Report Type: 
  Country: None (occurrence: None)
  Receive Date: 20110630
  Receipt Date: 20110609
  Transmission Date: 20111010
  Serious: Yes (Hospitalization)
  Sender: FDA-Public Use
  Company Number: A0806079A

PATIENT
  Age: 74 Year
  Sex: Male
  Weight: 88.6 kg

DRUGS (13)
  1. PRECOSE [Concomitant]
  2. IBUPROFEN [Concomitant]
  3. AVANDIA [Suspect]
     Dosage: 8MG PER DAY
     Route: 048
     Dates: start: 19990629, end: 20051230
  4. GLUCOPHAGE [Concomitant]
  5. PROSCAR [Concomitant]
  6. NPH INSULIN [Concomitant]
  7. SYNTHROID [Concomitant]
  8. PRINIVIL [Concomitant]
  9. BYETTA [Concomitant]
  10. ZOCOR [Concomitant]
  11. ASPIRIN [Concomitant]
  12. ACIPHEX [Concomitant]
  13. CELEBREX [Concomitant]

REACTIONS (3)
  - CARDIAC ARREST [None]
  - ATRIOVENTRICULAR BLOCK COMPLETE [None]
  - MYOCARDIAL INFARCTION [None]
